FAERS Safety Report 14870457 (Version 1)
Quarter: 2018Q2

REPORT INFORMATION
  Report Type: Other
  Country: FR (occurrence: FR)
  Receive Date: 20180509
  Receipt Date: 20180509
  Transmission Date: 20180711
  Serious: Yes (Hospitalization)
  Sender: FDA-Public Use
  Company Number: FR-DENTSPLY-2018SCDP000092

PATIENT

DRUGS (1)
  1. XYLOCAINE WITH ADRENALINE (EPINEPHRINE) [Suspect]
     Active Substance: EPINEPHRINE BITARTRATE\LIDOCAINE HYDROCHLORIDE
     Indication: ENDOSCOPY
     Dosage: UNK
     Route: 045
     Dates: start: 20180412, end: 20180412

REACTIONS (1)
  - Amnestic disorder [Recovered/Resolved]

NARRATIVE: CASE EVENT DATE: 20180412
